FAERS Safety Report 13038043 (Version 1)
Quarter: 2016Q4

REPORT INFORMATION
  Report Type: Spontaneous
  Country: US (occurrence: US)
  Receive Date: 20161213
  Receipt Date: 20161213
  Transmission Date: 20170207
  Serious: Yes (Death, Hospitalization)
  Sender: FDA-Public Use
  Company Number: None

PATIENT
  Age: 71 Year
  Sex: Male
  Weight: 88.9 kg

DRUGS (10)
  1. HYDROCHLORTHIAZIDE [Concomitant]
     Active Substance: HYDROCHLOROTHIAZIDE
  2. LISINOPRIL. [Concomitant]
     Active Substance: LISINOPRIL
  3. FENOFIBRATE. [Concomitant]
     Active Substance: FENOFIBRATE
  4. CARFILZOMIB [Suspect]
     Active Substance: CARFILZOMIB
     Indication: DIFFUSE LARGE B-CELL LYMPHOMA REFRACTORY
     Dosage: DAY 1,2,8,9,15,16 IV
     Route: 042
     Dates: start: 20161024, end: 20161110
  5. PREDNISONE. [Concomitant]
     Active Substance: PREDNISONE
  6. FISH OIL [Concomitant]
     Active Substance: FISH OIL
  7. TGR-1202 [Suspect]
     Active Substance: INVESTIGATIONAL PRODUCT
     Indication: DIFFUSE LARGE B-CELL LYMPHOMA REFRACTORY
     Route: 048
     Dates: start: 20161024, end: 20161116
  8. MULTIVITAMIN [Concomitant]
     Active Substance: VITAMINS
  9. MINERAL SUPPLEMENT [Concomitant]
  10. ASPIRIN. [Concomitant]
     Active Substance: ASPIRIN

REACTIONS (16)
  - Abdominal pain [None]
  - Malignant neoplasm progression [None]
  - Asthenia [None]
  - Pancytopenia [None]
  - Septic shock [None]
  - Deep vein thrombosis [None]
  - Chills [None]
  - Acute kidney injury [None]
  - Hypophagia [None]
  - Gastrointestinal mucosa hyperaemia [None]
  - Nausea [None]
  - Pyrexia [None]
  - Vomiting [None]
  - Haemodynamic instability [None]
  - Oedema mucosal [None]
  - Anaemia [None]

NARRATIVE: CASE EVENT DATE: 20161117
